FAERS Safety Report 6947632-4 (Version None)
Quarter: 2010Q3

REPORT INFORMATION
  Report Type: 
  Country: None (occurrence: None)
  Receive Date: 20100828
  Receipt Date: 20090922
  Transmission Date: 20110219
  Serious: No
  Sender: FDA-Public Use
  Company Number: US-ABBOTT-09P-163-0599425-00

PATIENT
  Sex: Male
  Weight: 86.26 kg

DRUGS (6)
  1. NIASPAN [Suspect]
     Indication: BLOOD CHOLESTEROL INCREASED
     Route: 048
     Dates: start: 20090701
  2. NIASPAN [Suspect]
     Route: 048
     Dates: start: 20090601, end: 20090701
  3. NIASPAN [Suspect]
     Route: 048
     Dates: end: 20090601
  4. ZOCOR [Concomitant]
     Indication: PRODUCT USED FOR UNKNOWN INDICATION
  5. HYTRIN [Concomitant]
     Indication: PRODUCT USED FOR UNKNOWN INDICATION
  6. UNKNOWN KNEE MEDICATION FOR ARTHRITIS [Concomitant]
     Indication: ARTHRITIS

REACTIONS (1)
  - PRURITUS [None]
